FAERS Safety Report 6659932-6 (Version None)
Quarter: 2010Q1

REPORT INFORMATION
  Report Type: 
  Country: None (occurrence: None)
  Receive Date: 20100330
  Receipt Date: 20100326
  Transmission Date: 20100710
  Serious: Yes (Death)
  Sender: FDA-Public Use
  Company Number: ZA-BRISTOL-MYERS SQUIBB COMPANY-14084917

PATIENT
  Sex: Female

DRUGS (1)
  1. STOCRIN TABS [Suspect]
     Indication: HIV INFECTION
     Route: 048

REACTIONS (3)
  - DEATH [None]
  - DRUG EXPOSURE DURING PREGNANCY [None]
  - PREGNANCY [None]
